FAERS Safety Report 9028568 (Version 3)
Quarter: 2013Q3

REPORT INFORMATION
  Report Type: Spontaneous
  Country: US (occurrence: US)
  Receive Date: 20130124
  Receipt Date: 20130821
  Transmission Date: 20140515
  Serious: Yes (Hospitalization)
  Sender: FDA-Public Use
  Company Number: US-GLAXOSMITHKLINE-A1009393A

PATIENT
  Age: 50 Year
  Sex: Female

DRUGS (1)
  1. FLOLAN [Suspect]
     Indication: PULMONARY ARTERIAL HYPERTENSION
     Dosage: 39NGKM CONTINUOUS
     Route: 042
     Dates: start: 20020826

REACTIONS (5)
  - Central venous catheterisation [Unknown]
  - Dyspnoea [Unknown]
  - Dizziness [Unknown]
  - Pulmonary arterial pressure increased [Unknown]
  - Medical device complication [Unknown]
